FAERS Safety Report 20981790 (Version 2)
Quarter: 2022Q2

REPORT INFORMATION
  Report Type: Spontaneous
  Country: US (occurrence: US)
  Receive Date: 20220620
  Receipt Date: 20220622
  Transmission Date: 20220720
  Serious: No
  Sender: FDA-Public Use
  Company Number: US-KYOWAKIRIN-2022BKK009236

PATIENT

DRUGS (1)
  1. CRYSVITA [Suspect]
     Active Substance: BUROSUMAB-TWZA
     Indication: Hereditary hypophosphataemic rickets
     Dosage: 40 MG, EVERY 28 DAYS
     Route: 065
     Dates: start: 20220603

REACTIONS (4)
  - Gait disturbance [Unknown]
  - Fatigue [Unknown]
  - Pain in extremity [Unknown]
  - Back pain [Unknown]
